FAERS Safety Report 23829917 (Version 1)
Quarter: 2024Q2

REPORT INFORMATION
  Report Type: Spontaneous
  Country: DK (occurrence: DK)
  Receive Date: 20240508
  Receipt Date: 20240508
  Transmission Date: 20240716
  Serious: Yes (Other)
  Sender: FDA-Public Use
  Company Number: DK-ALKEM LABORATORIES LIMITED-DK-ALKEM-2024-00189

PATIENT
  Age: 30 Year
  Sex: Female

DRUGS (3)
  1. AZATHIOPRINE [Suspect]
     Active Substance: AZATHIOPRINE
     Indication: Crohn^s disease
     Dosage: 150 MG/D
     Route: 065
  2. USTEKINUMAB [Suspect]
     Active Substance: USTEKINUMAB
     Indication: Crohn^s disease
     Dosage: 390 MILLIGRAM (AT GESTATIONAL WEEK 20)
     Route: 042
  3. USTEKINUMAB [Suspect]
     Active Substance: USTEKINUMAB
     Dosage: 90 MILLIGRAM (AT GESTATIONAL WEEKS 28 AND 34)
     Route: 058

REACTIONS (1)
  - Exposure during pregnancy [Unknown]
